FAERS Safety Report 11390850 (Version 1)
Quarter: 2015Q3

REPORT INFORMATION
  Report Type: Spontaneous
  Country: GB (occurrence: None)
  Receive Date: 20150813
  Receipt Date: 20150813
  Transmission Date: 20151125
  Serious: Yes (Other)
  Sender: FDA-Public Use
  Company Number: 2015RR-101471

PATIENT
  Age: 35 Year
  Sex: Female
  Weight: 63.5 kg

DRUGS (1)
  1. NAPROXEN (NAPROXEN) UNKNOWN [Suspect]
     Active Substance: NAPROXEN
     Indication: ARTHRALGIA
     Route: 048

REACTIONS (7)
  - Pyrexia [None]
  - Dyspepsia [None]
  - Headache [None]
  - Chills [None]
  - Myalgia [None]
  - Insomnia [None]
  - Oropharyngeal pain [None]

NARRATIVE: CASE EVENT DATE: 20150706
